FAERS Safety Report 10285841 (Version 1)
Quarter: 2014Q3

REPORT INFORMATION
  Report Type: Spontaneous
  Country: IT (occurrence: None)
  Receive Date: 20140703
  Receipt Date: 20140703
  Transmission Date: 20150326
  Serious: Yes (Hospitalization)
  Sender: FDA-Public Use
  Company Number: 2014AP003485

PATIENT
  Age: 49 Year
  Sex: Male

DRUGS (5)
  1. UBIDECARENONE (UBIDECARENONE) [Concomitant]
  2. CARDIOSAPIRIN (ACETYLSALICYLIC ACID) [Concomitant]
  3. ROSUVASTATIN CALCIUM [Suspect]
     Active Substance: ROSUVASTATIN CALCIUM
     Indication: PRODUCT USED FOR UNKNOWN INDICATION
  4. ATORVASTATIN [Suspect]
     Active Substance: ATORVASTATIN
     Indication: DYSLIPIDAEMIA
     Route: 048
     Dates: start: 20131215, end: 20140329
  5. LANSOPRAZOLE (LANSOPRAZOLE) [Concomitant]
     Active Substance: LANSOPRAZOLE

REACTIONS (2)
  - Rhabdomyolysis [None]
  - Chest pain [None]

NARRATIVE: CASE EVENT DATE: 20140329
